FAERS Safety Report 7400118-5 (Version None)
Quarter: 2011Q2

REPORT INFORMATION
  Report Type: 
  Country: None (occurrence: None)
  Receive Date: 20110407
  Receipt Date: 20110125
  Transmission Date: 20111010
  Serious: No
  Sender: FDA-Public Use
  Company Number: US-KINGPHARMUSA00001-K201100103

PATIENT
  Sex: Female

DRUGS (4)
  1. ALLEGRA [Concomitant]
  2. SINGULAIR [Concomitant]
  3. SKELAXIN [Suspect]
     Indication: MUSCLE SPASMS
     Dosage: 800 MG, TID
     Route: 048
     Dates: start: 20090101
  4. VENTOLIN [Concomitant]

REACTIONS (2)
  - DIZZINESS [None]
  - RASH [None]
